FAERS Safety Report 11480636 (Version 1)
Quarter: 2015Q3

REPORT INFORMATION
  Report Type: Spontaneous
  Country: US (occurrence: US)
  Receive Date: 20150909
  Receipt Date: 20150909
  Transmission Date: 20151125
  Serious: No
  Sender: FDA-Public Use
  Company Number: US-JAZZ-2014-US-016412

PATIENT
  Age: 21 Year
  Sex: Female
  Weight: 79.37 kg

DRUGS (5)
  1. PROVIGIL [Concomitant]
     Active Substance: MODAFINIL
     Indication: SOMNOLENCE
     Dosage: UNK
  2. XYREM [Suspect]
     Active Substance: SODIUM OXYBATE
     Indication: NARCOLEPSY
     Dosage: 3.25 G, BID
     Route: 048
     Dates: start: 201406, end: 2014
  3. XYREM [Suspect]
     Active Substance: SODIUM OXYBATE
     Indication: CATAPLEXY
     Dosage: 2.5 G, BID
     Route: 048
     Dates: start: 201310, end: 201406
  4. DEPO PROVERA SHOT [Concomitant]
     Indication: PRODUCT USED FOR UNKNOWN INDICATION
     Dosage: UNK
  5. XYREM [Suspect]
     Active Substance: SODIUM OXYBATE
     Dosage: 3.75 G, BID
     Route: 048
     Dates: start: 2014

REACTIONS (3)
  - Nasal congestion [Recovering/Resolving]
  - Cough [Recovering/Resolving]
  - Upper respiratory tract congestion [Recovering/Resolving]

NARRATIVE: CASE EVENT DATE: 20141209
